FAERS Safety Report 6911971-3 (Version None)
Quarter: 2010Q3

REPORT INFORMATION
  Report Type: 
  Country: None (occurrence: None)
  Receive Date: 20100806
  Receipt Date: 20071103
  Transmission Date: 20110219
  Serious: No
  Sender: FDA-Public Use
  Company Number: US-PFIZER INC-2007076480

PATIENT
  Sex: Female
  Weight: 83.91 kg

DRUGS (3)
  1. DETROL LA [Suspect]
     Indication: MICTURITION URGENCY
     Route: 048
     Dates: start: 20070911, end: 20070911
  2. MONTELUKAST SODIUM [Concomitant]
     Indication: ASTHMA
  3. ALBUTEROL [Concomitant]
     Route: 055

REACTIONS (1)
  - STOMATITIS [None]
